FAERS Safety Report 9251520 (Version 1)
Quarter: 2013Q1

REPORT INFORMATION
  Report Type: Spontaneous
  Country: US (occurrence: None)
  Receive Date: 20130305
  Receipt Date: 20130305
  Transmission Date: 20140127
  Serious: Yes (Other)
  Sender: FDA-Public Use
  Company Number: 163-21880-12042396

PATIENT
  Age: 80 Year
  Sex: Male
  Weight: 81.3 kg

DRUGS (5)
  1. REVLIMID (LENALIDOMIDE) [Suspect]
     Indication: MYELODYSPLASTIC SYNDROME
     Route: 048
     Dates: start: 201201, end: 20120315
  2. MAGNESIUM [Concomitant]
  3. CALCIUM (CALCIUM) [Concomitant]
  4. APAP WITH CODEINE (PANADEINE CO) [Concomitant]
  5. VIT D (ERGOCALCIFEROL) [Concomitant]

REACTIONS (1)
  - Neutropenia [None]
